FAERS Safety Report 7563801-7 (Version None)
Quarter: 2011Q2

REPORT INFORMATION
  Report Type: 
  Country: None (occurrence: None)
  Receive Date: 20110622
  Receipt Date: 20110323
  Transmission Date: 20111010
  Serious: Yes (Hospitalization)
  Sender: FDA-Public Use
  Company Number: CA-JNJFOC-20110310887

PATIENT
  Sex: Female
  Weight: 50.5 kg

DRUGS (3)
  1. METHOTREXATE [Concomitant]
  2. CELEBREX [Concomitant]
  3. REMICADE [Suspect]
     Indication: RHEUMATOID ARTHRITIS
     Route: 042
     Dates: start: 20090625

REACTIONS (2)
  - WEIGHT DECREASED [None]
  - CATATONIA [None]
